FAERS Safety Report 9649060 (Version 1)
Quarter: 2013Q4

REPORT INFORMATION
  Report Type: Spontaneous
  Country: US (occurrence: None)
  Receive Date: 20131018
  Receipt Date: 20131018
  Transmission Date: 20140711
  Serious: No
  Sender: FDA-Public Use
  Company Number: AEGR000122

PATIENT
  Sex: 0

DRUGS (1)
  1. JUXTAPID (LOMITAPIDE) CAPSULE, 10MG [Suspect]
     Indication: PRODUCT USED FOR UNKNOWN INDICATION
     Dosage: 5MG,PO.QD.
     Route: 048

REACTIONS (1)
  - Abdominal pain [None]
